FAERS Safety Report 5513890-6 (Version None)
Quarter: 2007Q4

REPORT INFORMATION
  Report Type: 
  Country: None (occurrence: None)
  Receive Date: 20071106
  Receipt Date: 20060925
  Transmission Date: 20080405
  Serious: Yes (Other)
  Sender: FDA-Public Use
  Company Number: US200609006133

PATIENT
  Age: 58 Year
  Sex: Male

DRUGS (2)
  1. PROZAC [Suspect]
     Indication: DEPRESSION
     Dosage: 20 MG, DAILY (1/D), ORAL
     Route: 048
  2. SPIRONOLACTONE [Concomitant]

REACTIONS (4)
  - GASTROOESOPHAGEAL REFLUX DISEASE [None]
  - RHEUMATOID ARTHRITIS [None]
  - TENDONITIS [None]
  - THROMBOSIS [None]
